FAERS Safety Report 10373620 (Version 1)
Quarter: 2014Q3

REPORT INFORMATION
  Report Type: Spontaneous
  Country: KR (occurrence: KR)
  Receive Date: 20140808
  Receipt Date: 20140808
  Transmission Date: 20150326
  Serious: Yes (Other)
  Sender: FDA-Public Use
  Company Number: PHHY2014KR096474

PATIENT
  Age: 72 Year
  Sex: Female

DRUGS (10)
  1. VALPROIC ACID. [Suspect]
     Active Substance: VALPROIC ACID
     Dosage: 1800 MG, UNK
  2. HERBAL NOS [Interacting]
     Active Substance: HERBALS
     Indication: ABDOMINAL DISCOMFORT
  3. OX BILE EXTRACT [Concomitant]
     Active Substance: BOS TAURUS BILE
     Dosage: 75 MG, UNK
  4. ASPIRIN. [Concomitant]
     Active Substance: ASPIRIN
     Indication: CEREBROVASCULAR ACCIDENT
     Dosage: 100 MG, UNK
  5. GABAPENTIN. [Concomitant]
     Active Substance: GABAPENTIN
     Indication: NEURALGIA
     Dosage: 900 MG, UNK
  6. PANCREATIN [Concomitant]
     Active Substance: PANCRELIPASE
     Dosage: 525 MG, UNK
  7. HERBAL NOS [Interacting]
     Active Substance: HERBALS
     Indication: DYSPEPSIA
     Route: 048
  8. QUETIAPINE [Concomitant]
     Active Substance: QUETIAPINE
     Indication: DELIRIUM
     Dosage: 25 MG, UNK
  9. DIMETHICONE. [Concomitant]
     Active Substance: DIMETHICONE
     Dosage: 75 MG, UNK
  10. HEMICELLULOSE [Concomitant]
     Dosage: 150 MG, UNK

REACTIONS (2)
  - Hypokalaemia [Unknown]
  - Drug interaction [Unknown]
